FAERS Safety Report 6031746-X (Version None)
Quarter: 2008Q4

REPORT INFORMATION
  Report Type: 
  Country: None (occurrence: None)
  Receive Date: 20081224
  Receipt Date: 20081105
  Transmission Date: 20090506
  Serious: No
  Sender: FDA-Public Use
  Company Number: 2007PV027990

PATIENT
  Age: 59 Year
  Sex: Male
  Weight: 78.9259 kg

DRUGS (4)
  1. SYMLIN [Suspect]
     Indication: TYPE 2 DIABETES MELLITUS
     Dosage: 90 MCG; ; SC, 120 MCG; BID; SC, 102 MCG; QAM; SC, 15 MCG; ; SC
     Route: 058
     Dates: start: 20050101, end: 20060101
  2. SYMLIN [Suspect]
     Indication: TYPE 2 DIABETES MELLITUS
     Dosage: 90 MCG; ; SC, 120 MCG; BID; SC, 102 MCG; QAM; SC, 15 MCG; ; SC
     Route: 058
     Dates: start: 20060101
  3. HUMALOG [Concomitant]
  4. METFORMIN [Concomitant]

REACTIONS (2)
  - BLOOD GLUCOSE INCREASED [None]
  - DRUG INEFFECTIVE [None]
